FAERS Safety Report 11198498 (Version 2)
Quarter: 2015Q3

REPORT INFORMATION
  Report Type: Spontaneous
  Country: JP (occurrence: JP)
  Receive Date: 20150618
  Receipt Date: 20150708
  Transmission Date: 20151125
  Serious: Yes (Other)
  Sender: FDA-Public Use
  Company Number: JP-AMGEN-JPNOT2015059750

PATIENT
  Age: 50 Year
  Sex: Female

DRUGS (9)
  1. ZOLADEX [Suspect]
     Active Substance: GOSERELIN ACETATE
     Indication: METASTASES TO BONE
     Dosage: UNK
     Route: 065
  2. TAMOXIFEN CITRATE. [Suspect]
     Active Substance: TAMOXIFEN CITRATE
     Indication: METASTASES TO BONE
     Dosage: UNK
     Route: 065
     Dates: start: 20050526, end: 20080327
  3. LEUPLIN [Suspect]
     Active Substance: LEUPROLIDE ACETATE
     Indication: METASTASES TO BONE
     Dosage: UNK
     Route: 065
  4. FULVESTRANT [Suspect]
     Active Substance: FULVESTRANT
     Indication: METASTASES TO BONE
     Dosage: UNK
     Route: 065
  5. ERIBULIN MESILATE [Suspect]
     Active Substance: ERIBULIN
     Indication: METASTASES TO BONE
     Dosage: UNK
     Route: 065
  6. RANMARK [Suspect]
     Active Substance: DENOSUMAB
     Indication: METASTASES TO BONE
     Dosage: UNK
     Route: 065
     Dates: start: 20131105
  7. TAMOXIFEN CITRATE. [Suspect]
     Active Substance: TAMOXIFEN CITRATE
     Indication: THERAPEUTIC PROCEDURE
  8. DOCETAXEL. [Concomitant]
     Active Substance: DOCETAXEL
     Indication: THERAPEUTIC PROCEDURE
     Dosage: 60, 6 TMS EVERY 1D
     Route: 042
  9. DOXORUBICIN HYDROCHLORIDE. [Concomitant]
     Active Substance: DOXORUBICIN HYDROCHLORIDE
     Indication: THERAPEUTIC PROCEDURE
     Dosage: 40, 6 TMS EVERY 1D
     Route: 042
     Dates: end: 20030402

REACTIONS (1)
  - Osteonecrosis of jaw [Recovering/Resolving]

NARRATIVE: CASE EVENT DATE: 20141008
